FAERS Safety Report 11259009 (Version 2)
Quarter: 2015Q3

REPORT INFORMATION
  Report Type: Spontaneous
  Country: JP (occurrence: JP)
  Receive Date: 20150710
  Receipt Date: 20150713
  Transmission Date: 20151125
  Serious: Yes (Death, Hospitalization, Other)
  Sender: FDA-Public Use
  Company Number: JP-PFIZER INC-2015225425

PATIENT
  Age: 69 Year
  Sex: Female
  Weight: 51 kg

DRUGS (22)
  1. CAMPTO [Suspect]
     Active Substance: IRINOTECAN
     Dosage: 220 MG, 1X/DAY, (149.5 MG/M2)
     Route: 041
     Dates: start: 20140508, end: 20140508
  2. 5-FU [Concomitant]
     Active Substance: FLUOROURACIL
     Dosage: 3500 MG/BODY/D1-2, (2377.7 MG/M2/D1-2), CYCLIC
     Route: 042
     Dates: start: 20140312
  3. 5-FU [Concomitant]
     Active Substance: FLUOROURACIL
     Dosage: 3400 MG/BODY/D1-2, (2309.8 MG/M2/D1-2) CYCLIC
     Route: 042
     Dates: start: 20140424, end: 20140825
  4. CAMPTO [Suspect]
     Active Substance: IRINOTECAN
     Indication: PANCREATIC CARCINOMA
     Dosage: 260MG, 1X/DAY, (176.6 MG/M2))
     Route: 041
     Dates: start: 20140312, end: 20140312
  5. ELPLAT [Suspect]
     Active Substance: OXALIPLATIN
     Dosage: 120 MG, 1X/DAY, (81.5 MG/M2))
     Route: 041
     Dates: start: 20140630, end: 20140630
  6. CAMPTO [Suspect]
     Active Substance: IRINOTECAN
     Dosage: 220 MG, 1X/DAY, (149.5 MG/M2)
     Route: 041
     Dates: start: 20140602, end: 20140602
  7. CAMPTO [Suspect]
     Active Substance: IRINOTECAN
     Dosage: 220 MG, 1X/DAY, (149.5 MG/M2)
     Route: 041
     Dates: start: 20140630, end: 20140630
  8. CAMPTO [Suspect]
     Active Substance: IRINOTECAN
     Dosage: 220 MG, 1X/DAY, (149.5 MG/M2)
     Route: 041
     Dates: start: 20140724, end: 20140724
  9. ELPLAT [Suspect]
     Active Substance: OXALIPLATIN
     Dosage: 120 MG, 1X/DAY, (81.5 MG/M2))
     Route: 041
     Dates: start: 20140407, end: 20140407
  10. 5-FU [Concomitant]
     Active Substance: FLUOROURACIL
     Dosage: 580 MG/BODY, (394 MG/M2)
     Route: 040
     Dates: start: 20140312
  11. ELPLAT [Suspect]
     Active Substance: OXALIPLATIN
     Dosage: 120 MG, 1X/DAY, (81.5 MG/M2))
     Route: 041
     Dates: start: 20140508, end: 20140508
  12. ELPLAT [Suspect]
     Active Substance: OXALIPLATIN
     Dosage: 93 MG, 1X/DAY, (63.2 MG/M2)
     Route: 041
     Dates: start: 20140825, end: 20140825
  13. LEVOFOLINATE CALCIUM [Concomitant]
     Active Substance: LEUCOVORIN CALCIUM
     Dosage: 275 MG/BODY, (186.8 MG/M2)
     Dates: start: 20140312, end: 20140825
  14. CAMPTO [Suspect]
     Active Substance: IRINOTECAN
     Dosage: 220 MG, 1X/DAY, (149.5 MG/M2)
     Route: 041
     Dates: start: 20140616, end: 20140616
  15. ELPLAT [Suspect]
     Active Substance: OXALIPLATIN
     Indication: PANCREATIC CARCINOMA
     Dosage: 120 MG, 1X/DAY, (81.5 MG/M2)
     Route: 041
     Dates: start: 20140312, end: 20140312
  16. ELPLAT [Suspect]
     Active Substance: OXALIPLATIN
     Dosage: 120 MG, 1X/DAY, (81.5 MG/M2))
     Route: 041
     Dates: start: 20140424, end: 20140424
  17. CAMPTO [Suspect]
     Active Substance: IRINOTECAN
     Dosage: 220 MG, 1X/DAY, (149.5 MG/M2)
     Route: 041
     Dates: start: 20140424, end: 20140424
  18. ELPLAT [Suspect]
     Active Substance: OXALIPLATIN
     Dosage: 120 MG, 1X/DAY, (81.5 MG/M2))
     Route: 041
     Dates: start: 20140602, end: 20140602
  19. ELPLAT [Suspect]
     Active Substance: OXALIPLATIN
     Dosage: 120 MG, 1X/DAY, (81.5 MG/M2))
     Route: 041
     Dates: start: 20140616, end: 20140616
  20. CAMPTO [Suspect]
     Active Substance: IRINOTECAN
     Dosage: 220MG, 1X/DAY, (149.5 MG/M2))
     Route: 041
     Dates: start: 20140407, end: 20140407
  21. CAMPTO [Suspect]
     Active Substance: IRINOTECAN
     Dosage: 175 MG, 1X/DAY, (118.9 MG/M2)
     Route: 041
     Dates: start: 20140825, end: 20140825
  22. ELPLAT [Suspect]
     Active Substance: OXALIPLATIN
     Dosage: 93 MG, 1X/DAY, (63.2 MG/M2)
     Route: 041
     Dates: start: 20140724, end: 20140724

REACTIONS (14)
  - Diarrhoea [Unknown]
  - Peripheral sensory neuropathy [Unknown]
  - Pyrexia [Unknown]
  - Neutrophil count decreased [Unknown]
  - White blood cell count decreased [Unknown]
  - Fatigue [Unknown]
  - Stomatitis [Unknown]
  - Pancreatic carcinoma [Fatal]
  - Haemoglobin decreased [Unknown]
  - Biliary tract infection [Unknown]
  - Alanine aminotransferase increased [Unknown]
  - Vomiting [Unknown]
  - Disease progression [Fatal]
  - Aspartate aminotransferase increased [Unknown]

NARRATIVE: CASE EVENT DATE: 20140326
